FAERS Safety Report 11998253 (Version 4)
Quarter: 2017Q1

REPORT INFORMATION
  Report Type: Report from Study
  Country: None (occurrence: DE)
  Receive Date: 20160203
  Receipt Date: 20170208
  Transmission Date: 20170428
  Serious: Yes (Death, Hospitalization)
  Sender: FDA-Public Use
  Company Number: DE-ABBVIE-16K-062-1548970-00

PATIENT
  Age: 71 Year
  Sex: Male

DRUGS (5)
  1. MTX [Suspect]
     Active Substance: METHOTREXATE SODIUM
     Route: 065
     Dates: start: 2015
  2. ORENCIA [Suspect]
     Active Substance: ABATACEPT
     Indication: PRODUCT USED FOR UNKNOWN INDICATION
     Route: 065
     Dates: start: 201505, end: 201505
  3. MTX [Suspect]
     Active Substance: METHOTREXATE SODIUM
     Indication: PRODUCT USED FOR UNKNOWN INDICATION
     Dosage: VARIABLE 10-15 MG
     Route: 065
     Dates: end: 2015
  4. HUMIRA [Suspect]
     Active Substance: ADALIMUMAB
     Indication: RHEUMATOID ARTHRITIS
     Route: 058
     Dates: start: 201503, end: 201506
  5. PROSTAVASIN [Suspect]
     Active Substance: ALPROSTADIL ALFADEX
     Indication: PRODUCT USED FOR UNKNOWN INDICATION
     Route: 065

REACTIONS (17)
  - Spinal fracture [Unknown]
  - Cerebrovascular accident [Fatal]
  - Tachycardia [Unknown]
  - Dry gangrene [Unknown]
  - Dysphagia [Unknown]
  - Impaired healing [Unknown]
  - Local swelling [Unknown]
  - Aortic dilatation [Unknown]
  - Septic necrosis [Fatal]
  - Peripheral arterial occlusive disease [Unknown]
  - Palpitations [Recovered/Resolved]
  - Toe amputation [Unknown]
  - Dementia [Unknown]
  - Drug hypersensitivity [Unknown]
  - Kyphosis [Recovered/Resolved]
  - Chest pain [Recovered/Resolved]
  - Oedema peripheral [Unknown]

NARRATIVE: CASE EVENT DATE: 20150915
